FAERS Safety Report 25251667 (Version 2)
Quarter: 2025Q2

REPORT INFORMATION
  Report Type: Report from Study
  Country: US (occurrence: US)
  Receive Date: 20250429
  Receipt Date: 20250513
  Transmission Date: 20250717
  Serious: Yes (Hospitalization)
  Sender: ALKERMES
  Company Number: US-ALKERMES INC.-ALK-2025-001029

PATIENT
  Age: 58 Year
  Sex: Male

DRUGS (10)
  1. BUPRENORPHINE [Suspect]
     Active Substance: BUPRENORPHINE
     Indication: Drug dependence
     Route: 030
     Dates: start: 20250127
  2. INVESTIGATIONAL PRODUCT [Suspect]
     Active Substance: INVESTIGATIONAL PRODUCT
     Indication: Drug dependence
     Route: 030
     Dates: start: 20250127
  3. VIVITROL [Suspect]
     Active Substance: NALTREXONE
     Indication: Drug dependence
     Route: 030
     Dates: start: 20250127
  4. VIVITROL [Suspect]
     Active Substance: NALTREXONE
     Indication: Drug dependence
     Route: 030
     Dates: start: 20250127
  5. BUPRENORPHINE [Suspect]
     Active Substance: BUPRENORPHINE
     Route: 058
     Dates: start: 20250130
  6. INVESTIGATIONAL PRODUCT [Suspect]
     Active Substance: INVESTIGATIONAL PRODUCT
     Route: 058
     Dates: start: 20250130
  7. VIVITROL [Suspect]
     Active Substance: NALTREXONE
     Route: 058
     Dates: start: 20250130
  8. VIVITROL [Suspect]
     Active Substance: NALTREXONE
     Route: 058
     Dates: start: 20250130
  9. ACETAMINOPHEN [Concomitant]
     Active Substance: ACETAMINOPHEN
     Indication: Product used for unknown indication
     Route: 065
  10. BACLOFEN [Concomitant]
     Active Substance: BACLOFEN
     Indication: Product used for unknown indication
     Route: 065

REACTIONS (1)
  - Neck pain [Recovered/Resolved]

NARRATIVE: CASE EVENT DATE: 20250412
